FAERS Safety Report 21846773 (Version 1)
Quarter: 2023Q1

REPORT INFORMATION
  Report Type: Spontaneous
  Country: GB (occurrence: None)
  Receive Date: 20230111
  Receipt Date: 20230111
  Transmission Date: 20230418
  Serious: Yes (Hospitalization)
  Sender: FDA-Public Use
  Company Number: GB-ROCHE-3258296

PATIENT
  Sex: Female
  Weight: 86 kg

DRUGS (5)
  1. HERCEPTIN [Suspect]
     Active Substance: TRASTUZUMAB
     Indication: Breast cancer
     Dosage: INJECTION INTO THIGH, ONGOING: NO
     Route: 058
     Dates: start: 20180601, end: 20181214
  2. CARVEDILOL [Concomitant]
     Active Substance: CARVEDILOL
     Dosage: A 6.25MG AND A 3.175 PILL TWICE A DAY ;ONGOING: YES
  3. SPIRONOLACTONE [Concomitant]
     Active Substance: SPIRONOLACTONE
     Dosage: HALF OF A 25MG TABLET ;ONGOING: YES
  4. CANDESARTAN [Concomitant]
     Active Substance: CANDESARTAN
  5. FOLIC ACID [Concomitant]
     Active Substance: FOLIC ACID

REACTIONS (7)
  - Insomnia [Unknown]
  - Cardiac failure [Unknown]
  - Dyspnoea [Unknown]
  - Chest pain [Unknown]
  - Ejection fraction decreased [Unknown]
  - Cardiac function test abnormal [Not Recovered/Not Resolved]
  - Asthenia [Unknown]

NARRATIVE: CASE EVENT DATE: 20181230
